FAERS Safety Report 22629781 (Version 1)
Quarter: 2023Q2

REPORT INFORMATION
  Report Type: Spontaneous
  Country: RO (occurrence: RO)
  Receive Date: 20230622
  Receipt Date: 20230622
  Transmission Date: 20230722
  Serious: Yes (Other)
  Sender: FDA-Public Use
  Company Number: RO-SUN PHARMACEUTICAL INDUSTRIES LTD-2023RR-395450

PATIENT
  Age: 55 Year
  Sex: Male

DRUGS (2)
  1. MEMANTINE [Suspect]
     Active Substance: MEMANTINE
     Indication: Dementia
     Dosage: 10 MILLIGRAM, BID
     Route: 065
  2. QUETIAPINE [Suspect]
     Active Substance: QUETIAPINE
     Indication: Insomnia
     Dosage: 50 MILLIGRAM, DAILY, BEFORE BEDTIME
     Route: 065

REACTIONS (1)
  - Therapeutic product effect incomplete [Recovering/Resolving]
